FAERS Safety Report 12638747 (Version 3)
Quarter: 2020Q3

REPORT INFORMATION
  Report Type: Report from Study
  Country: PL (occurrence: PL)
  Receive Date: 20160809
  Receipt Date: 20200921
  Transmission Date: 20201102
  Serious: Yes (Hospitalization, Other)
  Sender: FDA-Public Use
  Company Number: PHHO2013PL015261

PATIENT
  Age: 9 Year
  Sex: Female
  Weight: 20.5 kg

DRUGS (1)
  1. SOMATROPIN. [Suspect]
     Active Substance: SOMATROPIN
     Indication: SMALL FOR DATES BABY
     Dosage: 0.6 MG, QD
     Route: 058
     Dates: start: 20080710

REACTIONS (2)
  - Ear infection [Recovered/Resolved]
  - Adenoidal disorder [Recovered/Resolved]

NARRATIVE: CASE EVENT DATE: 20121119
